FAERS Safety Report 5651792-5 (Version None)
Quarter: 2008Q1

REPORT INFORMATION
  Report Type: 
  Country: None (occurrence: None)
  Receive Date: 20080305
  Receipt Date: 20080222
  Transmission Date: 20080703
  Serious: Yes (Hospitalization)
  Sender: FDA-Public Use
  Company Number: JP-PFIZER INC-2008011996

PATIENT
  Sex: Female
  Weight: 68 kg

DRUGS (7)
  1. EPIRUBICIN HYDROCHLORIDE [Suspect]
     Indication: BREAST CANCER
     Dosage: DAILY DOSE:100MG
     Route: 042
     Dates: start: 20071206, end: 20071227
  2. ENDOXAN [Concomitant]
     Indication: BREAST CANCER
     Dosage: DAILY DOSE:1000MG
     Route: 042
     Dates: start: 20071206, end: 20071227
  3. NAVOBAN [Concomitant]
     Route: 048
     Dates: start: 20071206, end: 20071227
  4. DEXAMETHASONE SODIUM PHOSPHATE [Concomitant]
     Route: 048
     Dates: start: 20071207, end: 20080104
  5. DEXAMETHASONE SODIUM PHOSPHATE [Concomitant]
     Route: 042
     Dates: start: 20071206, end: 20071227
  6. NAUZELIN [Concomitant]
     Route: 048
     Dates: start: 20071207, end: 20080104
  7. KYTRIL [Concomitant]
     Route: 042
     Dates: start: 20071206, end: 20071227

REACTIONS (1)
  - INTERSTITIAL LUNG DISEASE [None]
